FAERS Safety Report 7712691-8 (Version None)
Quarter: 2011Q3

REPORT INFORMATION
  Report Type: 
  Country: None (occurrence: None)
  Receive Date: 20110826
  Receipt Date: 20110824
  Transmission Date: 20111222
  Serious: Yes (Hospitalization)
  Sender: FDA-Public Use
  Company Number: US-BRISTOL-MYERS SQUIBB COMPANY-15169485

PATIENT
  Age: 59 Year
  Sex: Male
  Weight: 50 kg

DRUGS (4)
  1. TAXOL [Suspect]
     Indication: OESOPHAGEAL ADENOCARCINOMA
     Dosage: LAST DOSE ON: 11MAY10
     Route: 042
     Dates: start: 20100323
  2. ERBITUX [Suspect]
     Indication: OESOPHAGEAL ADENOCARCINOMA
     Dosage: LAST DOSE ON :11MAY10
     Route: 042
     Dates: start: 20100323
  3. CISPLATIN [Suspect]
     Indication: OESOPHAGEAL ADENOCARCINOMA
     Dosage: LAST DOSE ON 11MAY10
     Route: 042
     Dates: start: 20100323
  4. RADIATION THERAPY [Suspect]

REACTIONS (10)
  - PNEUMONIA ASPIRATION [None]
  - NAUSEA [None]
  - VOMITING [None]
  - DECREASED APPETITE [None]
  - SINUS TACHYCARDIA [None]
  - DEHYDRATION [None]
  - GASTROOESOPHAGEAL REFLUX DISEASE [None]
  - ENTERITIS INFECTIOUS [None]
  - HYPONATRAEMIA [None]
  - HYPOALBUMINAEMIA [None]
